FAERS Safety Report 8048067-6 (Version None)
Quarter: 2012Q1

REPORT INFORMATION
  Report Type: 
  Country: None (occurrence: None)
  Receive Date: 20120117
  Receipt Date: 20120110
  Transmission Date: 20120608
  Serious: No
  Sender: FDA-Public Use
  Company Number: US-BIOGENIDEC-2012BI001198

PATIENT
  Age: 47 Year
  Sex: Female

DRUGS (1)
  1. AVONEX [Suspect]
     Indication: MULTIPLE SCLEROSIS
     Route: 030
     Dates: start: 20111019

REACTIONS (9)
  - FATIGUE [None]
  - PAIN IN EXTREMITY [None]
  - MUSCLE TIGHTNESS [None]
  - ARTHRITIS [None]
  - JOINT SWELLING [None]
  - ABDOMINAL RIGIDITY [None]
  - ARTHROPATHY [None]
  - MUSCLE HYPERTROPHY [None]
  - DYSPNOEA [None]
